FAERS Safety Report 4491407-5 (Version None)
Quarter: 2004Q4

REPORT INFORMATION
  Report Type: 
  Country: None (occurrence: None)
  Receive Date: 20041101
  Receipt Date: 20041101
  Transmission Date: 20050328
  Serious: Yes (Other)
  Sender: FDA-Public Use
  Company Number: None

PATIENT
  Age: 62 Year
  Sex: Female
  Weight: 66 kg

DRUGS (2)
  1. XALATAN [Suspect]
     Indication: OCULAR HYPERTENSION
     Dosage: 1 DROP P EYE DAILY
     Route: 047
     Dates: start: 19980601, end: 20030701
  2. XALATAN [Suspect]
     Indication: OPEN ANGLE GLAUCOMA
     Dosage: 1 DROP P EYE DAILY
     Route: 047
     Dates: start: 19980601, end: 20030701

REACTIONS (4)
  - LIP DISCOLOURATION [None]
  - ORAL MUCOSAL DISCOLOURATION [None]
  - PIGMENTATION DISORDER [None]
  - TONGUE DISCOLOURATION [None]
